FAERS Safety Report 4294279-7 (Version None)
Quarter: 2004Q1

REPORT INFORMATION
  Report Type: 
  Country: None (occurrence: None)
  Receive Date: 20040211
  Receipt Date: 20030811
  Transmission Date: 20041129
  Serious: No
  Sender: FDA-Public Use
  Company Number: US-GLAXOSMITHKLINE-A0420611A

PATIENT
  Sex: Female

DRUGS (8)
  1. LAMICTAL [Suspect]
     Indication: BIPOLAR DISORDER
     Dosage: 200MG PER DAY
     Route: 048
  2. PRAVACHOL [Concomitant]
  3. ASPIRIN [Concomitant]
  4. PAXIL [Concomitant]
  5. MULTI-VITAMIN [Concomitant]
  6. HYDROCHLOROTHIAZIDE [Concomitant]
  7. UNSPECIFIED MEDICATION [Concomitant]
  8. LITHIUM CARBONATE [Concomitant]
     Dates: start: 19700408

REACTIONS (1)
  - BLOOD CREATININE INCREASED [None]
